FAERS Safety Report 4348954-6 (Version None)
Quarter: 2004Q2

REPORT INFORMATION
  Report Type: 
  Country: None (occurrence: None)
  Receive Date: 20040423
  Receipt Date: 20040413
  Transmission Date: 20050107
  Serious: Yes (Hospitalization)
  Sender: FDA-Public Use
  Company Number: A0493325A

PATIENT
  Age: 9 Year
  Sex: Female

DRUGS (2)
  1. LAMICTAL [Suspect]
     Dosage: 200 MG, ORAL
     Route: 048
  2. TERBINAFINE HCL [Suspect]
     Dosage: 250 MG, ORAL
     Route: 048

REACTIONS (2)
  - ADVERSE EVENT [None]
  - MEDICATION ERROR [None]
